FAERS Safety Report 10932442 (Version 1)
Quarter: 2015Q1

REPORT INFORMATION
  Report Type: Spontaneous
  Country: US (occurrence: None)
  Receive Date: 20150318
  Receipt Date: 20150318
  Transmission Date: 20150721
  Serious: Yes (Hospitalization)
  Sender: FDA-Public Use
  Company Number: 2015UCU075000040

PATIENT
  Age: 47 Year
  Sex: Male
  Weight: 86.18 kg

DRUGS (44)
  1. ENOXAPARIN [Concomitant]
     Active Substance: ENOXAPARIN
  2. SEPTRA [Concomitant]
     Active Substance: SULFAMETHOXAZOLE\TRIMETHOPRIM
  3. METHOTREXATE [Concomitant]
     Active Substance: METHOTREXATE
  4. PREDNISONE. [Suspect]
     Active Substance: PREDNISONE
     Indication: CROHN^S DISEASE
     Dates: start: 199009, end: 199311
  5. ACETAMINOPHEN. [Concomitant]
     Active Substance: ACETAMINOPHEN
  6. BISCODYL [Concomitant]
     Active Substance: BISACODYL
  7. CITALOPRAM [Concomitant]
     Active Substance: CITALOPRAM HYDROBROMIDE
  8. TIZANIDINE (TIZANIDINE) [Concomitant]
     Active Substance: TIZANIDINE
  9. CENLAFAXINE [Concomitant]
  10. AMITRIPTYLINE [Concomitant]
     Active Substance: AMITRIPTYLINE
  11. KETAMINE [Concomitant]
     Active Substance: KETAMINE
  12. METHYLNALTREXONE [Concomitant]
     Active Substance: METHYLNALTREXONE
  13. NYSTATIN. [Concomitant]
     Active Substance: NYSTATIN
  14. LINEZOLID. [Concomitant]
     Active Substance: LINEZOLID
  15. CIPROFLOXACIN. [Concomitant]
     Active Substance: CIPROFLOXACIN
  16. 6-MP [Concomitant]
     Active Substance: MERCAPTOPURINE
  17. HUMIRA [Concomitant]
     Active Substance: ADALIMUMAB
  18. BOLIZE (ENZYMES) [Concomitant]
  19. VANCOMYCIN [Concomitant]
     Active Substance: VANCOMYCIN
  20. HYDROCODONE-ACETOMINOPHEN [Concomitant]
  21. DEMEROL [Concomitant]
     Active Substance: MEPERIDINE HYDROCHLORIDE
  22. VANCOMYCIN [Concomitant]
     Active Substance: VANCOMYCIN
  23. LACTOBACILLUS ACIDOPHILUS [Concomitant]
     Active Substance: LACTOBACILLUS ACIDOPHILUS
  24. OXYCODONE [Concomitant]
     Active Substance: OXYCODONE
  25. BACTRIM [Concomitant]
     Active Substance: SULFAMETHOXAZOLE\TRIMETHOPRIM
  26. GABAPENTIN. [Concomitant]
     Active Substance: GABAPENTIN
  27. FLAGYL [Concomitant]
     Active Substance: METRONIDAZOLE\METRONIDAZOLE HYDROCHLORIDE
  28. RIFAMPIN. [Concomitant]
     Active Substance: RIFAMPIN
  29. BACITRACINM DECADRON [Concomitant]
  30. LEVOPHED [Concomitant]
     Active Substance: NOREPINEPHRINE BITARTRATE
  31. PROBIOTIC [Concomitant]
     Active Substance: PROBIOTICS NOS
  32. CHOLECALCIFEROL [Concomitant]
     Active Substance: CHOLECALCIFEROL
  33. ALBUTEROL. [Concomitant]
     Active Substance: ALBUTEROL
  34. INFLIXIMAB [Concomitant]
     Active Substance: INFLIXIMAB
  35. METOPROLOL TARTRATE. [Concomitant]
     Active Substance: METOPROLOL TARTRATE
  36. LISINOPRIL. [Concomitant]
     Active Substance: LISINOPRIL
  37. HYDROMORPHINE [Concomitant]
     Active Substance: HYDROMORPHONE
  38. OMEPRAZOLE. [Concomitant]
     Active Substance: OMEPRAZOLE
  39. CIMZIA [Suspect]
     Active Substance: CERTOLIZUMAB PEGOL
     Indication: CROHN^S DISEASE
  40. FENTANYL. [Concomitant]
     Active Substance: FENTANYL
  41. PANTOPRAZOLE [Concomitant]
     Active Substance: PANTOPRAZOLE SODIUM
  42. DOPAMINE [Concomitant]
     Active Substance: DOPAMINE\DOPAMINE HYDROCHLORIDE
  43. HUMALOG [Concomitant]
     Active Substance: INSULIN LISPRO
  44. MESALAMINE. [Concomitant]
     Active Substance: MESALAMINE

REACTIONS (1)
  - Staphylococcal bacteraemia [None]

NARRATIVE: CASE EVENT DATE: 20140902
